FAERS Safety Report 8856300 (Version 2)
Quarter: 2012Q4

REPORT INFORMATION
  Report Type: Spontaneous
  Country: None (occurrence: None)
  Receive Date: 20121018
  Receipt Date: 20121019
  Transmission Date: 20130627
  Serious: Yes (Hospitalization)
  Sender: FDA-Public Use
  Company Number: AUR-APL-2012-04392

PATIENT
  Age: 75 Year
  Sex: Male

DRUGS (12)
  1. METFORMIN (METFORMIN) [Suspect]
     Indication: DRUG USE FOR UNKNOWN INDICATION
     Dosage: 500 mg, 2 in 1 D
     Route: 048
     Dates: start: 20120403, end: 20120409
  2. INVESTIGATIONAL PRODUCT [Suspect]
     Indication: DRUG USE FOR UNKNOWN INDICATION
     Route: 048
     Dates: start: 20120328, end: 20120402
  3. INVESTIGATIONAL PRODUCT [Suspect]
     Indication: DRUG USE FOR UNKNOWN INDICATION
     Dosage: 400 mg (200 mg, 2 in 1 D), oral
     Route: 048
     Dates: start: 20120403, end: 20120410
  4. INVESTIGATIONAL PRODUCT [Suspect]
     Indication: DRUG USE FOR UNKNOWN INDICATION
     Dosage: 120 mg, 2 in 1 D
     Route: 048
     Dates: start: 20120417
  5. ASPIRIN (ACETYLSALICYLIC ACID) [Concomitant]
  6. BISOPROLOL (BISOPROLOL) [Concomitant]
  7. CANDESARTAN (CANDESARTAN) [Concomitant]
  8. GAVISCON (GAVISCON) [Concomitant]
  9. INDAPAMIDE (INDAPAMIDE) [Concomitant]
  10. LOPERAMIDE (LOPERAMIDE) [Concomitant]
  11. METOCLOPRAMIDE (METOCLOPRAMIDE) [Concomitant]
  12. PRAVASTATIN (PRAVASTATIN) [Concomitant]

REACTIONS (1)
  - Renal impairment [None]
